FAERS Safety Report 6946736-X (Version None)
Quarter: 2010Q3

REPORT INFORMATION
  Report Type: 
  Country: None (occurrence: None)
  Receive Date: 20100825
  Receipt Date: 20100812
  Transmission Date: 20110219
  Serious: Yes (Hospitalization, Other)
  Sender: FDA-Public Use
  Company Number: AUR-APL-2010-02035

PATIENT
  Age: 35 Year
  Sex: Male

DRUGS (11)
  1. RISPERIDONE [Suspect]
     Dosage: 2MG, DAILY, ORAL
     Route: 048
  2. ALCOHOL [Suspect]
  3. COCAINE [Suspect]
  4. AMPHETAMINE SULFATE [Suspect]
  5. DICLOFENAC [Suspect]
     Dosage: 50MG, TID,
  6. LANSOPRAZOLE [Suspect]
     Dosage: 130MG, BID,
  7. METHADONE HCL [Suspect]
     Dosage: 80MG, DAILY,
  8. RISPERDAL CONSTA [Suspect]
     Indication: SCHIZOPHRENIA
     Dosage: 150MG, Q2W, IM
     Route: 030
     Dates: end: 20100617
  9. TETRABENAZINE [Suspect]
     Dosage: 12.5MG, DAILY
  10. VALDOXAN [Suspect]
     Dosage: 25MG, DAILY,
  11. ZOPICLONE [Suspect]
     Dosage: 7.5MG, DAILY,

REACTIONS (3)
  - ALCOHOL USE [None]
  - ELECTROCARDIOGRAM ABNORMAL [None]
  - MULTIPLE DRUG OVERDOSE INTENTIONAL [None]
